FAERS Safety Report 4432102-8 (Version None)
Quarter: 2004Q3

REPORT INFORMATION
  Report Type: 
  Country: None (occurrence: None)
  Receive Date: 20040825
  Receipt Date: 20040817
  Transmission Date: 20050211
  Serious: Yes (Death)
  Sender: FDA-Public Use
  Company Number: JP-JNJFOC-20040504987

PATIENT
  Sex: Female

DRUGS (10)
  1. FENTANYL CITRATE [Suspect]
     Route: 062
  2. FENTANYL CITRATE [Suspect]
     Route: 062
  3. FENTANYL CITRATE [Suspect]
     Indication: CANCER PAIN
     Route: 062
  4. FAMOTIDINE [Concomitant]
     Indication: DUODENAL ULCER
     Route: 042
  5. FERRIC OXIDE SACCHARATED [Concomitant]
     Indication: ANAEMIA
     Route: 042
  6. FUROSEMIDE [Concomitant]
     Indication: PLEURAL EFFUSION
     Route: 042
  7. FUROSEMIDE [Concomitant]
     Indication: ASCITES
     Route: 042
  8. MORPHINE HYDROCHLORIDE [Concomitant]
     Indication: CANCER PAIN
     Dosage: 2 MG TO 3 MG PER DAY
     Route: 042
  9. TAZOBACTAM PIPERACILLIN [Concomitant]
     Route: 041
  10. TAZOBACTAM PIPERACILLIN [Concomitant]
     Indication: PYREXIA
     Route: 041

REACTIONS (15)
  - ALANINE AMINOTRANSFERASE INCREASED [None]
  - ANAEMIA [None]
  - ASPARTATE AMINOTRANSFERASE INCREASED [None]
  - BLOOD UREA INCREASED [None]
  - FISTULA [None]
  - LEUKOCYTOSIS [None]
  - LEUKOPENIA [None]
  - MALIGNANT NEOPLASM PROGRESSION [None]
  - MALIGNANT PLEURAL EFFUSION [None]
  - NECROSIS [None]
  - PERITONITIS [None]
  - PYREXIA [None]
  - RED BLOOD CELL COUNT DECREASED [None]
  - SEPSIS [None]
  - VESICAL FISTULA [None]
